FAERS Safety Report 15994930 (Version 10)
Quarter: 2019Q4

REPORT INFORMATION
  Report Type: Spontaneous
  Country: JP (occurrence: JP)
  Receive Date: 20190222
  Receipt Date: 20191129
  Transmission Date: 20200122
  Serious: Yes (Death, Hospitalization, Other)
  Sender: FDA-Public Use
  Company Number: JP-BRISTOL-MYERS SQUIBB COMPANY-BMS-2018-106229

PATIENT
  Age: 69 Year
  Sex: Male
  Weight: 59.4 kg

DRUGS (4)
  1. OPDIVO [Suspect]
     Active Substance: NIVOLUMAB
     Indication: RENAL CELL CARCINOMA
     Dosage: 240 MILLIGRAM, Q3WK
     Route: 041
     Dates: start: 20180904, end: 20181106
  2. YERVOY [Suspect]
     Active Substance: IPILIMUMAB
     Indication: RENAL CELL CARCINOMA
     Dosage: 70 MG, UNK
     Route: 041
     Dates: start: 20180904, end: 20181106
  3. LANSOPRAZOLE. [Suspect]
     Active Substance: LANSOPRAZOLE
     Indication: GASTRIC ULCER
     Dosage: 15 MILLIGRAM, QD
     Route: 048
     Dates: start: 20180831, end: 20181108
  4. OPDIVO [Suspect]
     Active Substance: NIVOLUMAB
     Indication: PRODUCT USED FOR UNKNOWN INDICATION
     Dosage: 240 MILLIGRAM, Q3WK
     Route: 041
     Dates: start: 20181225, end: 20190122

REACTIONS (9)
  - Malignant neoplasm progression [Fatal]
  - Sialoadenitis [Recovering/Resolving]
  - Sjogren^s syndrome [Unknown]
  - Colitis [Recovered/Resolved]
  - Nephritis [Recovering/Resolving]
  - Gastroenteritis staphylococcal [Recovered/Resolved]
  - Dry mouth [Unknown]
  - Taste disorder [Unknown]
  - Pollakiuria [Recovered/Resolved]

NARRATIVE: CASE EVENT DATE: 20181016
